FAERS Safety Report 22015540 (Version 1)
Quarter: 2023Q1

REPORT INFORMATION
  Report Type: Spontaneous
  Country: DE (occurrence: DE)
  Receive Date: 20230221
  Receipt Date: 20230221
  Transmission Date: 20230418
  Serious: Yes (Other)
  Sender: FDA-Public Use
  Company Number: DE-BoehringerIngelheim-2023-BI-218937

PATIENT
  Age: 64 Year
  Sex: Male

DRUGS (2)
  1. JARDIANCE [Suspect]
     Active Substance: EMPAGLIFLOZIN
     Indication: Cardiac failure
  2. JARDIANCE [Suspect]
     Active Substance: EMPAGLIFLOZIN
     Dates: start: 20230203

REACTIONS (12)
  - Fungal infection [Unknown]
  - Dysuria [Unknown]
  - Genital burning sensation [Unknown]
  - Pruritus genital [Unknown]
  - Phimosis [Unknown]
  - Phimosis [Unknown]
  - Skin laceration [Unknown]
  - Pruritus [Unknown]
  - Pruritus [Unknown]
  - Dizziness [Unknown]
  - Hypotension [Unknown]
  - Fatigue [Unknown]
